FAERS Safety Report 9123207 (Version 1)
Quarter: 2013Q1

REPORT INFORMATION
  Report Type: Spontaneous
  Country: US (occurrence: US)
  Receive Date: 20130114
  Receipt Date: 20130114
  Transmission Date: 20140127
  Serious: Yes (Other)
  Sender: FDA-Public Use
  Company Number: US-PFIZER INC-2013014632

PATIENT
  Age: 45 Year
  Sex: Female
  Weight: 83.9 kg

DRUGS (3)
  1. NEURONTIN [Suspect]
     Indication: NERVE INJURY
     Dosage: UNK
     Dates: start: 2000
  2. NEURONTIN [Suspect]
     Indication: PAIN
     Dosage: 600 MG, FOUR TO FIVE TIMES A DAY
     Dates: start: 2002
  3. NEURONTIN [Suspect]
     Dosage: 3600 MG, DAILY

REACTIONS (2)
  - Sarcoma [Unknown]
  - Sarcoma metastatic [Unknown]
